FAERS Safety Report 8793151 (Version 2)
Quarter: 2013Q2

REPORT INFORMATION
  Report Type: Spontaneous
  Country: US (occurrence: US)
  Receive Date: 20120918
  Receipt Date: 20130423
  Transmission Date: 20140414
  Serious: No
  Sender: FDA-Public Use
  Company Number: US-009507513-1208USA011355

PATIENT
  Age: 65 Year
  Sex: Female
  Weight: 77.98 kg

DRUGS (4)
  1. VICTRELIS [Suspect]
     Indication: HEPATITIS C
     Dosage: UNK
     Route: 048
     Dates: start: 20120317
  2. REBETOL [Suspect]
     Indication: HEPATITIS C
     Dosage: UNK
     Route: 048
     Dates: start: 20120224
  3. PEGASYS [Concomitant]
     Indication: HEPATITIS C
     Dosage: UNK UNK, QW
     Route: 058
     Dates: start: 20120224
  4. PEGASYS [Concomitant]
     Dosage: 180 MG, QW
     Dates: start: 20120818, end: 20121118

REACTIONS (11)
  - Bronchitis [Unknown]
  - Cough [Unknown]
  - Urinary tract infection [Recovered/Resolved]
  - Platelet count decreased [Unknown]
  - Local swelling [Unknown]
  - Anaemia [Unknown]
  - Skin disorder [Unknown]
  - Eating disorder [Unknown]
  - Sleep disorder [Unknown]
  - Malaise [Unknown]
  - Dysgeusia [Unknown]
